FAERS Safety Report 9674896 (Version 1)
Quarter: 2013Q4

REPORT INFORMATION
  Report Type: Spontaneous
  Country: US (occurrence: US)
  Receive Date: 20131107
  Receipt Date: 20131107
  Transmission Date: 20140711
  Serious: No
  Sender: FDA-Public Use
  Company Number: US-009507513-1311USA001377

PATIENT
  Sex: Male

DRUGS (1)
  1. INVANZ [Suspect]
     Indication: INFECTION
     Dosage: 1 G DAILY FOR SEVEN DAYS
     Route: 042
     Dates: start: 2013, end: 2013

REACTIONS (2)
  - Aggression [Recovered/Resolved]
  - Muscular weakness [Recovered/Resolved]
